FAERS Safety Report 7598630-1 (Version None)
Quarter: 2011Q3

REPORT INFORMATION
  Report Type: 
  Country: None (occurrence: None)
  Receive Date: 20110710
  Receipt Date: 20110628
  Transmission Date: 20111222
  Serious: Yes (Other)
  Sender: FDA-Public Use
  Company Number: US-AMGEN-USASP2011033136

PATIENT
  Age: 68 Year
  Sex: Female

DRUGS (2)
  1. ENBREL [Suspect]
     Indication: RHEUMATOID ARTHRITIS
     Dosage: 50 MG, QWK
     Dates: start: 20110401
  2. PREDNISONE [Concomitant]
     Dosage: 1 MG, QD
     Dates: start: 20110627

REACTIONS (4)
  - LUNG DISORDER [None]
  - DYSPNOEA EXERTIONAL [None]
  - BRONCHITIS [None]
  - DRUG HYPERSENSITIVITY [None]
